FAERS Safety Report 24033867 (Version 2)
Quarter: 2024Q3

REPORT INFORMATION
  Report Type: Spontaneous
  Country: JP (occurrence: JP)
  Receive Date: 20240701
  Receipt Date: 20240913
  Transmission Date: 20241016
  Serious: Yes (Hospitalization, Other)
  Sender: SANOFI AVENTIS
  Company Number: JP-SA-2024SA137460

PATIENT
  Age: 60 Year
  Sex: Female

DRUGS (1)
  1. DUPIXENT [Suspect]
     Active Substance: DUPILUMAB
     Indication: Chronic eosinophilic rhinosinusitis
     Dosage: UNK
     Route: 058

REACTIONS (5)
  - Cardiac ventricular thrombosis [Unknown]
  - Peripheral swelling [Unknown]
  - Pyrexia [Unknown]
  - Eosinophil count increased [Recovering/Resolving]
  - Arthralgia [Unknown]
